FAERS Safety Report 23730251 (Version 2)
Quarter: 2024Q2

REPORT INFORMATION
  Report Type: Spontaneous
  Country: US (occurrence: US)
  Receive Date: 20240411
  Receipt Date: 20240426
  Transmission Date: 20240715
  Serious: Yes (Other)
  Sender: FDA-Public Use
  Company Number: US-AMGEN-USASP2024070883

PATIENT
  Sex: Female

DRUGS (1)
  1. KANJINTI [Suspect]
     Active Substance: TRASTUZUMAB-ANNS
     Indication: Breast cancer
     Dosage: UNK
     Route: 065

REACTIONS (5)
  - Breast cancer recurrent [Recovering/Resolving]
  - Blindness [Recovering/Resolving]
  - Brain fog [Recovering/Resolving]
  - Malnutrition [Unknown]
  - Gait disturbance [Unknown]
